FAERS Safety Report 7893506-4 (Version None)
Quarter: 2011Q4

REPORT INFORMATION
  Report Type: 
  Country: None (occurrence: None)
  Receive Date: 20111104
  Receipt Date: 20111026
  Transmission Date: 20120403
  Serious: Yes (Death, Hospitalization)
  Sender: FDA-Public Use
  Company Number: ES-BRISTOL-MYERS SQUIBB COMPANY-16189284

PATIENT
  Age: 48 Year
  Sex: Male

DRUGS (4)
  1. LEUCOVORIN CALCIUM [Concomitant]
     Dosage: 1DF=720. UNIT NOT SPECIFIED
     Route: 042
     Dates: start: 20100826, end: 20110921
  2. FLUOROURACIL [Concomitant]
     Dosage: 1DF= 720+4320. UNIT NOT SPECIFIED
     Route: 042
     Dates: start: 20100826, end: 20110921
  3. OXALIPLATIN [Concomitant]
     Dosage: 1DF=153. UNIT NOT SPECIFIED
     Route: 042
     Dates: start: 20100826, end: 20110921
  4. ERBITUX [Suspect]
     Indication: COLON CANCER
     Dosage: 900MG:15APR11-27MAY11, 450MG:27JUL11-21SEP2011
     Route: 042
     Dates: start: 20110415, end: 20110921

REACTIONS (4)
  - INTERSTITIAL LUNG DISEASE [None]
  - MUCOSAL INFLAMMATION [None]
  - CONJUNCTIVITIS [None]
  - WEIGHT DECREASED [None]
